FAERS Safety Report 6700196-2 (Version None)
Quarter: 2010Q2

REPORT INFORMATION
  Report Type: 
  Country: None (occurrence: None)
  Receive Date: 20100428
  Receipt Date: 20100414
  Transmission Date: 20101027
  Serious: Yes (Other)
  Sender: FDA-Public Use
  Company Number: US-PFIZER INC-2008094268

PATIENT
  Sex: Female
  Weight: 69.841 kg

DRUGS (12)
  1. LYRICA [Suspect]
     Indication: FIBROMYALGIA
     Dosage: 50 MG TWO TO THREE TIMES A DAY
  2. LYRICA [Suspect]
     Dosage: 150 MG, 3X/DAY
     Route: 048
  3. METHADONE HCL [Suspect]
     Dosage: UNK
     Dates: start: 20080101, end: 20080101
  4. LAMICTAL [Concomitant]
     Indication: BIPOLAR DISORDER
     Dosage: 400 MG, 1X/DAY
     Route: 048
  5. ADDERALL 30 [Concomitant]
  6. MULTIPLE VITAMIN [Concomitant]
  7. XANAX [Concomitant]
     Indication: PANIC DISORDER
     Dosage: 4 MG, 1X/DAY
     Route: 048
  8. LIBRAX [Concomitant]
  9. AMBIEN [Concomitant]
  10. FIORICET [Concomitant]
  11. LO/OVRAL [Concomitant]
  12. CODEINE SULFATE [Concomitant]

REACTIONS (5)
  - DEPRESSION [None]
  - JOINT SWELLING [None]
  - NODULE ON EXTREMITY [None]
  - OEDEMA PERIPHERAL [None]
  - WEIGHT INCREASED [None]
